FAERS Safety Report 4561310-0 (Version None)
Quarter: 2005Q1

REPORT INFORMATION
  Report Type: 
  Country: None (occurrence: None)
  Receive Date: 20050124
  Receipt Date: 20050111
  Transmission Date: 20050727
  Serious: Yes (Hospitalization)
  Sender: FDA-Public Use
  Company Number: 2005011278

PATIENT
  Sex: Female
  Weight: 133.8111 kg

DRUGS (9)
  1. DEPO-ESTRADIOL [Suspect]
     Indication: MENOPAUSAL SYMPTOMS
     Dosage: 1 ML (1 ML, EVERY 3-4 WEEKS)
     Dates: start: 20030501, end: 20030101
  2. DEPO-TESTADIOL [Suspect]
     Indication: MENOPAUSAL SYMPTOMS
     Dosage: 1 ML (1 ML, EVERY 3-4 WEEKS)
     Dates: start: 19980101, end: 20030101
  3. DEPO-TESTADIOL [Suspect]
     Indication: MENOPAUSAL SYMPTOMS
     Dosage: 1 ML (1 ML, EVERY 3-4 WEEKS)
     Dates: start: 20030101, end: 20040101
  4. ROSIGLITAZONE MALEATE [Concomitant]
  5. METFORMIN HCL [Concomitant]
  6. GLIBOMET (GLIBENCLAMIDE, METFORMIN HYDROCHLORIDE) [Concomitant]
  7. GABAPENTIN [Concomitant]
  8. METOPROLOL SUCCINATE [Concomitant]
  9. CARVEDILOL [Concomitant]

REACTIONS (4)
  - CARDIAC FAILURE CONGESTIVE [None]
  - FOOT FRACTURE [None]
  - MEDICATION ERROR [None]
  - METRORRHAGIA [None]
